FAERS Safety Report 8327402-5 (Version None)
Quarter: 2012Q2

REPORT INFORMATION
  Report Type: 
  Country: None (occurrence: None)
  Receive Date: 20120430
  Receipt Date: 20120423
  Transmission Date: 20120825
  Serious: Yes (Life-Threatening, Hospitalization, Other)
  Sender: FDA-Public Use
  Company Number: 2011SP040379

PATIENT
  Age: 59 Year
  Sex: Female

DRUGS (10)
  1. BUPROPION HCL [Concomitant]
  2. RIBASPHERE [Suspect]
     Indication: PRODUCT USED FOR UNKNOWN INDICATION
  3. VICTRELIS [Suspect]
     Indication: HEPATITIS C
     Dosage: ;PO
     Route: 048
     Dates: start: 20110701
  4. SEROQUEL [Concomitant]
  5. PEG-INTRON [Suspect]
     Indication: PRODUCT USED FOR UNKNOWN INDICATION
  6. DIOVAN [Concomitant]
  7. HYDROCHLOROTHIAZIDE [Concomitant]
  8. CITALOPRAM HYDROBROMIDE [Concomitant]
  9. NOVOLOG [Concomitant]
  10. HUMULIN R [Concomitant]

REACTIONS (7)
  - NAUSEA [None]
  - EPISTAXIS [None]
  - PLATELET COUNT DECREASED [None]
  - DEHYDRATION [None]
  - DELIRIUM [None]
  - DIABETES MELLITUS INADEQUATE CONTROL [None]
  - HALLUCINATION [None]
